FAERS Safety Report 7488088-5 (Version None)
Quarter: 2011Q2

REPORT INFORMATION
  Report Type: 
  Country: None (occurrence: None)
  Receive Date: 20110518
  Receipt Date: 20110512
  Transmission Date: 20111010
  Serious: Yes (Other)
  Sender: FDA-Public Use
  Company Number: SI-PFIZER INC-2011103105

PATIENT
  Age: 83 Year
  Sex: Female

DRUGS (1)
  1. MEDROL [Suspect]
     Dosage: 4 MG IN ONE DAY; 1/2 TABLET (2MG) THE NEXT DAY, 1X/DAY
     Route: 048
     Dates: start: 20070101, end: 20110501

REACTIONS (3)
  - HYPOKALAEMIA [None]
  - RASH [None]
  - LEUKOPENIA [None]
